FAERS Safety Report 7906941-2 (Version None)
Quarter: 2011Q4

REPORT INFORMATION
  Report Type: 
  Country: None (occurrence: None)
  Receive Date: 20111109
  Receipt Date: 20111109
  Transmission Date: 20120403
  Serious: No
  Sender: FDA-Public Use
  Company Number: None

PATIENT

DRUGS (1)
  1. MIRAPEX [Suspect]

REACTIONS (6)
  - SOMNOLENCE [None]
  - HALLUCINATION [None]
  - CONFUSIONAL STATE [None]
  - DRUG DEPENDENCE [None]
  - PATHOLOGICAL GAMBLING [None]
  - OBSESSIVE-COMPULSIVE DISORDER [None]
